FAERS Safety Report 7518990-7 (Version None)
Quarter: 2011Q2

REPORT INFORMATION
  Report Type: 
  Country: None (occurrence: None)
  Receive Date: 20110523
  Receipt Date: 20110510
  Transmission Date: 20111010
  Serious: Yes (Hospitalization)
  Sender: FDA-Public Use
  Company Number: 2011CP000083

PATIENT
  Age: 24 Year
  Sex: Female

DRUGS (7)
  1. ACETAMINOPHEN [Suspect]
     Dosage: 1 GM;1 DAY;IV
     Route: 042
     Dates: start: 20110120, end: 20110121
  2. VALACICLOVIR [Suspect]
  3. LOVENOX [Suspect]
     Dosage: 4000 IU;1 DAY;SC
     Route: 058
     Dates: start: 20101216, end: 20110121
  4. DELURSAN [Concomitant]
  5. ACUPAN [Suspect]
     Dates: start: 20101216
  6. AUGMENTIN '125' [Suspect]
     Dosage: 1 GM;3/1DAY;PO
     Route: 048
     Dates: start: 20101216, end: 20110121
  7. ACETAMINOPHEN [Suspect]
     Dosage: PO
     Route: 048
     Dates: start: 20101216, end: 20110120

REACTIONS (7)
  - ALANINE AMINOTRANSFERASE INCREASED [None]
  - BLOOD ALKALINE PHOSPHATASE INCREASED [None]
  - HYPERBILIRUBINAEMIA [None]
  - CONDITION AGGRAVATED [None]
  - PANCYTOPENIA [None]
  - ASPARTATE AMINOTRANSFERASE INCREASED [None]
  - GAMMA-GLUTAMYLTRANSFERASE INCREASED [None]
